FAERS Safety Report 21598096 (Version 8)
Quarter: 2024Q3

REPORT INFORMATION
  Report Type: Report from Study
  Country: US (occurrence: US)
  Receive Date: 20221115
  Receipt Date: 20240926
  Transmission Date: 20241016
  Serious: Yes (Hospitalization, Other)
  Sender: TAKEDA
  Company Number: US-TAKEDA-2022TUS083755

PATIENT
  Age: 26 Year
  Sex: Female

DRUGS (4)
  1. VONICOG ALFA [Suspect]
     Active Substance: VONICOG ALFA
     Indication: Haemorrhage
     Dosage: 2600 INTERNATIONAL UNIT
     Route: 042
  2. VONICOG ALFA [Suspect]
     Active Substance: VONICOG ALFA
     Indication: Heavy menstrual bleeding
     Dosage: 2600 INTERNATIONAL UNIT
     Route: 065
  3. VONICOG ALFA [Suspect]
     Active Substance: VONICOG ALFA
     Dosage: 2600 INTERNATIONAL UNIT
     Route: 050
  4. VONICOG ALFA [Suspect]
     Active Substance: VONICOG ALFA
     Dosage: 2660 INTERNATIONAL UNIT, 2/WEEK
     Route: 050

REACTIONS (12)
  - Heavy menstrual bleeding [Not Recovered/Not Resolved]
  - Haemarthrosis [Recovered/Resolved]
  - Epistaxis [Unknown]
  - Muscle haemorrhage [Recovered/Resolved]
  - Abortion spontaneous [Unknown]
  - Haemorrhage [Unknown]
  - Blood urine present [Unknown]
  - Renal haemorrhage [Unknown]
  - Vaginal haemorrhage [Unknown]
  - Haemoglobin abnormal [Unknown]
  - Pregnancy [Recovered/Resolved]
  - Arthropathy [Unknown]

NARRATIVE: CASE EVENT DATE: 20221023
